FAERS Safety Report 12167898 (Version 1)
Quarter: 2016Q1

REPORT INFORMATION
  Report Type: Spontaneous
  Country: US (occurrence: None)
  Receive Date: 20160309
  Receipt Date: 20160309
  Transmission Date: 20160526
  Serious: Yes (Hospitalization)
  Sender: FDA-Public Use
  Company Number: None

PATIENT
  Age: 72 Year
  Sex: Male
  Weight: 86.18 kg

DRUGS (1)
  1. LEVOFLOXACIN (-GENERIC) LEVAQUIN: [Suspect]
     Active Substance: LEVOFLOXACIN
     Indication: SINUSITIS
     Dosage: 20 PILLS 2 EA/DAY BY MOUTH.
     Route: 048
     Dates: start: 20151217, end: 20160105

REACTIONS (4)
  - Peripheral swelling [None]
  - Tendon pain [None]
  - Musculoskeletal stiffness [None]
  - Gait disturbance [None]

NARRATIVE: CASE EVENT DATE: 20160105
